FAERS Safety Report 7153160-6 (Version None)
Quarter: 2010Q4

REPORT INFORMATION
  Report Type: 
  Country: None (occurrence: None)
  Receive Date: 20101208
  Receipt Date: 20101208
  Transmission Date: 20110411
  Serious: Yes (Death, Hospitalization)
  Sender: FDA-Public Use
  Company Number: None

PATIENT
  Age: 71 Year
  Sex: Female

DRUGS (9)
  1. REVLIMID [Suspect]
     Indication: MULTIPLE MYELOMA
     Dosage: 10 MG DAILY 21D/28D ORALLY
     Route: 048
  2. REVLIMID [Concomitant]
  3. DECADRON [Concomitant]
  4. PROCRIT [Concomitant]
  5. LOSARTAN POTASSIUM [Concomitant]
  6. ZOFRAN [Concomitant]
  7. HYDROCHLOROTHIAZIDE [Concomitant]
  8. ASPIRIN [Concomitant]
  9. FLONASE [Concomitant]

REACTIONS (4)
  - DIVERTICULITIS [None]
  - NO THERAPEUTIC RESPONSE [None]
  - PANCYTOPENIA [None]
  - REFUSAL OF TREATMENT BY PATIENT [None]
